FAERS Safety Report 6026964-0 (Version None)
Quarter: 2009Q1

REPORT INFORMATION
  Report Type: 
  Country: None (occurrence: None)
  Receive Date: 20090105
  Receipt Date: 20081224
  Transmission Date: 20090719
  Serious: Yes (Other)
  Sender: FDA-Public Use
  Company Number: PHHY2008NO17937

PATIENT
  Sex: Female

DRUGS (3)
  1. LEPONEX [Suspect]
     Indication: SCHIZOPHRENIA
     Dosage: 125 MG, QD
     Dates: start: 20070401
  2. LEPONEX [Suspect]
     Dosage: LOW DOSE
  3. LEPONEX [Suspect]
     Dosage: 400 MG, UNK
     Dates: start: 20080301

REACTIONS (17)
  - ABDOMINAL DISTENSION [None]
  - ABNORMAL BEHAVIOUR [None]
  - DECREASED ACTIVITY [None]
  - DRY MOUTH [None]
  - EXOPHTHALMOS [None]
  - HEART RATE INCREASED [None]
  - INCOHERENT [None]
  - LISTLESS [None]
  - LYMPHADENOPATHY [None]
  - PALLOR [None]
  - POSTURE ABNORMAL [None]
  - RESTLESSNESS [None]
  - SCHIZOPHRENIA [None]
  - SKIN STRIAE [None]
  - SPEECH DISORDER [None]
  - URINARY INCONTINENCE [None]
  - WEIGHT INCREASED [None]
